FAERS Safety Report 9937887 (Version 1)
Quarter: 2014Q1

REPORT INFORMATION
  Report Type: Spontaneous
  Country: US (occurrence: US)
  Receive Date: 20140303
  Receipt Date: 20140303
  Transmission Date: 20141002
  Serious: No
  Sender: FDA-Public Use
  Company Number: US-BIOGENIDEC-2014BI016796

PATIENT
  Sex: Male

DRUGS (5)
  1. TECFIDERA [Suspect]
     Indication: MULTIPLE SCLEROSIS
     Route: 048
     Dates: start: 201306
  2. COREG [Concomitant]
  3. GLUCOSAMINE-CHONDROITI 500-400 [Concomitant]
  4. TAMARIX [Concomitant]
  5. VITAMIN D [Concomitant]

REACTIONS (5)
  - Depressed mood [Unknown]
  - Nasopharyngitis [Unknown]
  - Flushing [Unknown]
  - Gastrointestinal disorder [Unknown]
  - White blood cell count decreased [Unknown]
